FAERS Safety Report 9881697 (Version 1)
Quarter: 2014Q1

REPORT INFORMATION
  Report Type: Spontaneous
  Country: US (occurrence: US)
  Receive Date: 20140207
  Receipt Date: 20140207
  Transmission Date: 20141002
  Serious: No
  Sender: FDA-Public Use
  Company Number: US-GILEAD-2011-0045297

PATIENT
  Age: 43 Year
  Sex: Male

DRUGS (3)
  1. TRUVADA [Suspect]
     Indication: HIV INFECTION
     Dosage: 1 DF, QD
     Dates: start: 2010
  2. NORVIR [Concomitant]
     Indication: HIV INFECTION
     Dosage: UNK
  3. PREZISTA                           /05513801/ [Concomitant]
     Indication: HIV INFECTION
     Dosage: UNK

REACTIONS (1)
  - Lip swelling [Unknown]
